FAERS Safety Report 4957489-9 (Version None)
Quarter: 2006Q1

REPORT INFORMATION
  Report Type: 
  Country: None (occurrence: None)
  Receive Date: 20060330
  Receipt Date: 20050526
  Transmission Date: 20060701
  Serious: No
  Sender: FDA-Public Use
  Company Number: US-GLAXOSMITHKLINE-A0560306A

PATIENT
  Age: 6 Year
  Sex: Male

DRUGS (6)
  1. FLOVENT [Suspect]
     Indication: DRUG USE FOR UNKNOWN INDICATION
     Dosage: 2PUFF TWICE PER DAY
     Route: 055
     Dates: start: 20050512
  2. ALBUTEROL [Concomitant]
  3. ZOLOFT [Concomitant]
  4. SINGULAIR [Concomitant]
  5. ZYRTEC [Concomitant]
  6. TRILEPTAL [Concomitant]

REACTIONS (3)
  - DRUG ADMINISTRATION ERROR [None]
  - DRUG INEFFECTIVE [None]
  - PHARMACEUTICAL PRODUCT COMPLAINT [None]
